FAERS Safety Report 6110975-0 (Version None)
Quarter: 2009Q1

REPORT INFORMATION
  Report Type: 
  Country: None (occurrence: None)
  Receive Date: 20090311
  Receipt Date: 20090127
  Transmission Date: 20090719
  Serious: Yes (Hospitalization)
  Sender: FDA-Public Use
  Company Number: FR-ASTRAZENECA-2009CG00285

PATIENT
  Age: 22821 Day
  Sex: Female

DRUGS (10)
  1. CRESTOR [Suspect]
     Route: 048
     Dates: end: 20080823
  2. IBUPROFEN TABLETS [Suspect]
     Indication: BACK PAIN
     Route: 048
     Dates: start: 20080805, end: 20080815
  3. ACETAMINOPHEN AND CODEINE PHOSPHATE [Suspect]
     Indication: BACK PAIN
     Route: 048
     Dates: start: 20080805, end: 20080815
  4. TETRAZEPAM [Suspect]
     Indication: BACK PAIN
     Route: 048
     Dates: start: 20080805, end: 20080815
  5. XANAX [Suspect]
     Indication: ANXIETY
     Route: 048
     Dates: end: 20080818
  6. OGAST [Suspect]
     Route: 048
     Dates: end: 20080818
  7. ASPIRIN [Suspect]
     Route: 048
     Dates: end: 20080819
  8. HYZAAR [Suspect]
     Indication: HYPERTENSION
     Dates: end: 20080823
  9. HYPERIUM [Suspect]
     Indication: HYPERTENSION
     Route: 048
     Dates: end: 20080823
  10. PROZAC [Concomitant]

REACTIONS (2)
  - DRUG RASH WITH EOSINOPHILIA AND SYSTEMIC SYMPTOMS [None]
  - TOXIC SKIN ERUPTION [None]
